FAERS Safety Report 16475154 (Version 4)
Quarter: 2019Q4

REPORT INFORMATION
  Report Type: Spontaneous
  Country: US (occurrence: US)
  Receive Date: 20190625
  Receipt Date: 20191010
  Transmission Date: 20200122
  Serious: No
  Sender: FDA-Public Use
  Company Number: US-BRISTOL-MYERS SQUIBB COMPANY-BMS-2019-062095

PATIENT
  Age: 43 Year
  Sex: Female

DRUGS (1)
  1. ORENCIA [Suspect]
     Active Substance: ABATACEPT
     Indication: SJOGREN^S SYNDROME
     Dosage: 125 MILLIGRAM, QWK
     Route: 058

REACTIONS (4)
  - Underdose [Unknown]
  - Peripheral swelling [Unknown]
  - Needle issue [Unknown]
  - Joint swelling [Unknown]

NARRATIVE: CASE EVENT DATE: 201905
